FAERS Safety Report 8417599-0 (Version None)
Quarter: 2012Q2

REPORT INFORMATION
  Report Type: 
  Country: None (occurrence: None)
  Receive Date: 20120606
  Receipt Date: 20120604
  Transmission Date: 20120825
  Serious: Yes (Death, Hospitalization)
  Sender: FDA-Public Use
  Company Number: JP-BAYER-2012-025061

PATIENT
  Age: 76 Year
  Sex: Male
  Weight: 74 kg

DRUGS (1)
  1. NEXAVAR [Suspect]
     Indication: HEPATIC NEOPLASM MALIGNANT
     Dosage: 200 MG, BID
     Route: 048
     Dates: start: 20111208, end: 20120217

REACTIONS (4)
  - PALMAR-PLANTAR ERYTHRODYSAESTHESIA SYNDROME [None]
  - HEPATIC NEOPLASM MALIGNANT [None]
  - HYPERTENSION [None]
  - GASTRIC ULCER [None]
